FAERS Safety Report 13450060 (Version 1)
Quarter: 2017Q2

REPORT INFORMATION
  Report Type: Spontaneous
  Country: US (occurrence: US)
  Receive Date: 20170417
  Receipt Date: 20170417
  Transmission Date: 20170830
  Serious: No
  Sender: FDA-Public Use
  Company Number: US-BION-20160577

PATIENT
  Age: 64 Year
  Sex: Male
  Weight: 113.4 kg

DRUGS (4)
  1. BAYER ASPIRIN 81MG [Concomitant]
  2. AMOLODIPIN-BENAZ [Concomitant]
  3. ALEVE [Suspect]
     Active Substance: NAPROXEN SODIUM
     Indication: ANALGESIC THERAPY
     Dosage: 1 DF
     Route: 048
  4. BAYER ASPIRIN 81MG [Concomitant]

REACTIONS (2)
  - Wrong technique in product usage process [Unknown]
  - Incorrect drug administration duration [Unknown]
